FAERS Safety Report 6217005-0 (Version None)
Quarter: 2009Q2

REPORT INFORMATION
  Report Type: 
  Country: None (occurrence: None)
  Receive Date: 20090604
  Receipt Date: 20090521
  Transmission Date: 20091009
  Serious: Yes (Death, Hospitalization)
  Sender: FDA-Public Use
  Company Number: 2009001548

PATIENT
  Age: 73 Year
  Sex: Female
  Weight: 43.5 kg

DRUGS (4)
  1. ERLOTINIB (ERLOTINIB) (TABLET) (ERLOTINIB) [Suspect]
     Indication: NON-SMALL CELL LUNG CANCER
     Dosage: 150 MG ORAL
     Route: 048
     Dates: start: 20090430, end: 20090508
  2. CP-751,871 [Suspect]
     Indication: NON-SMALL CELL LUNG CANCER
  3. ATENOLOL [Concomitant]
  4. CEPHALEXIN [Concomitant]

REACTIONS (3)
  - BLOOD GLUCOSE INCREASED [None]
  - PNEUMONIA [None]
  - RESPIRATORY FAILURE [None]
